FAERS Safety Report 25104964 (Version 1)
Quarter: 2025Q1

REPORT INFORMATION
  Report Type: Report from Study
  Country: US (occurrence: US)
  Receive Date: 20250321
  Receipt Date: 20250321
  Transmission Date: 20250408
  Serious: Yes (Other)
  Sender: AUROBINDO
  Company Number: US-AUROBINDO-AUR-APL-2025-014560

PATIENT
  Age: 48 Year
  Sex: Male

DRUGS (7)
  1. PREDNISONE [Suspect]
     Active Substance: PREDNISONE
     Indication: Arthralgia
     Route: 065
  2. PREDNISONE [Suspect]
     Active Substance: PREDNISONE
     Indication: Choroiditis
  3. SPIRONOLACTONE [Suspect]
     Active Substance: SPIRONOLACTONE
     Indication: Central serous chorioretinopathy
     Dosage: 500 MILLIGRAM, TWO TIMES A DAY
     Route: 065
  4. MYCOPHENOLIC ACID [Suspect]
     Active Substance: MYCOPHENOLIC ACID
     Indication: Central serous chorioretinopathy
     Dosage: 1500 MILLIGRAM, TWO TIMES A DAY
     Route: 065
  5. METHOTREXATE [Suspect]
     Active Substance: METHOTREXATE
     Indication: Central serous chorioretinopathy
     Route: 058
  6. ACETAZOLAMIDE [Suspect]
     Active Substance: ACETAZOLAMIDE
     Indication: Central serous chorioretinopathy
     Dosage: 500 MILLIGRAM, TWO TIMES A DAY
     Route: 065
  7. ADALIMUMAB [Suspect]
     Active Substance: ADALIMUMAB
     Indication: Central serous chorioretinopathy
     Route: 065

REACTIONS (4)
  - Drug ineffective [Unknown]
  - Visual field defect [Unknown]
  - Disease recurrence [Unknown]
  - Treatment noncompliance [Unknown]
